FAERS Safety Report 9386778 (Version 1)
Quarter: 2013Q3

REPORT INFORMATION
  Report Type: Spontaneous
  Country: CA (occurrence: None)
  Receive Date: 20130702
  Receipt Date: 20130702
  Transmission Date: 20140515
  Serious: Yes (Other)
  Sender: FDA-Public Use
  Company Number: 2013P1010231

PATIENT
  Age: 31 Year
  Sex: Male
  Weight: 61 kg

DRUGS (2)
  1. LIDOCAINE [Suspect]
     Indication: REPLACEMENT OF AMBULATORY PERITONEAL CATHETER
     Route: 033
  2. LORAZEPAM [Concomitant]

REACTIONS (14)
  - Dyspnoea [None]
  - Dizziness [None]
  - Choking sensation [None]
  - Agitation [None]
  - Speech disorder [None]
  - Respiratory rate increased [None]
  - Blood pressure increased [None]
  - Sinus tachycardia [None]
  - Hallucination, visual [None]
  - Depressed level of consciousness [None]
  - Dysarthria [None]
  - Toxicity to various agents [None]
  - Lethargy [None]
  - Hypokinesia [None]
